FAERS Safety Report 25660156 (Version 1)
Quarter: 2025Q3

REPORT INFORMATION
  Report Type: Spontaneous
  Country: JP (occurrence: JP)
  Receive Date: 20250808
  Receipt Date: 20250808
  Transmission Date: 20251021
  Serious: Yes (Life-Threatening, Hospitalization, Other)
  Sender: BAYER HEALTHCARE PHARMACEUTICALS INC.
  Company Number: JP-BAYER-2025A094466

PATIENT
  Age: 35 Year
  Sex: Male
  Weight: 88 kg

DRUGS (9)
  1. GADOBUTROL [Suspect]
     Active Substance: GADOBUTROL
     Indication: Magnetic resonance imaging
     Route: 042
     Dates: start: 20250716, end: 20250716
  2. GADOBUTROL [Suspect]
     Active Substance: GADOBUTROL
     Indication: Soft tissue neoplasm
  3. HUMALOG [Concomitant]
     Active Substance: INSULIN LISPRO
  4. FELBINAC [Concomitant]
     Active Substance: FELBINAC
     Route: 003
  5. BEZAFIBRATE [Concomitant]
     Active Substance: BEZAFIBRATE
     Route: 048
  6. TELMISARTAN [Concomitant]
     Active Substance: TELMISARTAN
     Route: 048
  7. AMLODIPINE [Concomitant]
     Active Substance: AMLODIPINE BESYLATE
     Route: 048
  8. VOGLIBOSE [Concomitant]
     Active Substance: VOGLIBOSE
     Route: 048
  9. DAPAGLIFLOZIN [Concomitant]
     Active Substance: DAPAGLIFLOZIN
     Route: 048

REACTIONS (7)
  - Anaphylactic shock [Recovered/Resolved]
  - Cardio-respiratory arrest [Recovered/Resolved]
  - Cyanosis [Recovered/Resolved]
  - Altered state of consciousness [Recovered/Resolved]
  - Seizure [Recovered/Resolved]
  - Choking [Recovered/Resolved]
  - Pulse absent [Recovered/Resolved]

NARRATIVE: CASE EVENT DATE: 20250716
